FAERS Safety Report 9870415 (Version 1)
Quarter: 2014Q1

REPORT INFORMATION
  Report Type: Spontaneous
  Country: US (occurrence: None)
  Receive Date: 20140204
  Receipt Date: 20140204
  Transmission Date: 20141002
  Serious: Yes (Disabling)
  Sender: FDA-Public Use
  Company Number: None

PATIENT
  Age: 22 Year
  Sex: Female
  Weight: 54.43 kg

DRUGS (1)
  1. MEFLOQUINE [Suspect]
     Indication: MALARIA PROPHYLAXIS
     Dosage: 1 TAB  ONCE WEEKLY  TAKEN BY MOUTH
     Route: 048
     Dates: start: 20030908, end: 20040830

REACTIONS (8)
  - Irritability [None]
  - Anger [None]
  - Restlessness [None]
  - Tinnitus [None]
  - Dizziness [None]
  - Balance disorder [None]
  - Headache [None]
  - Photosensitivity reaction [None]
